FAERS Safety Report 9430253 (Version 4)
Quarter: 2013Q3

REPORT INFORMATION
  Report Type: Spontaneous
  Country: US (occurrence: US)
  Receive Date: 20130730
  Receipt Date: 20130906
  Transmission Date: 20140515
  Serious: Yes (Death, Life-Threatening, Hospitalization, Other)
  Sender: FDA-Public Use
  Company Number: US-JNJFOC-20130713054

PATIENT
  Sex: 0

DRUGS (9)
  1. DOXORUBICIN [Suspect]
     Indication: PLASMA CELL MYELOMA
     Dosage: 1-3 MG/M2 AS CONTINUOUS 24 HOURS INTRAVENOUS INFUSION
     Route: 042
  2. BORTEZOMIB [Suspect]
     Indication: PLASMA CELL MYELOMA
     Dosage: 1.0 OR 1.3 MG/M2 ON DAYS 1, 4, 7, 10, 13 AND 16
     Route: 065
  3. THALIDOMIDE [Suspect]
     Indication: PLASMA CELL MYELOMA
     Route: 065
  4. DEXAMETHASONE [Suspect]
     Indication: PLASMA CELL MYELOMA
     Dosage: 12, 20 OR 40 MG ON DAYS 1, 4, 7, 10, 13, 16
     Route: 065
  5. CISPLATIN [Suspect]
     Indication: PLASMA CELL MYELOMA
     Dosage: 1.0-3 MG/M2 (ADJUSTED ACCORDING TO RENAL FUNCTION) AS CONTINUOUS 24-HOURS INTRAVENOUS INFUSION
     Route: 042
  6. RAPAMYCIN [Suspect]
     Indication: PLASMA CELL MYELOMA
     Dosage: 3 MG ON DAY 1, THEN 1 MG FOR DAYS 2-16 (DEPENDING ON RENAL FUNCTION)
     Route: 065
  7. ACYCLOVIR [Concomitant]
     Indication: INFECTION PROPHYLAXIS
     Route: 048
  8. FLUCONAZOLE [Concomitant]
     Indication: INFECTION PROPHYLAXIS
     Route: 048
  9. LEVOFLOXACIN [Concomitant]
     Indication: INFECTION PROPHYLAXIS
     Route: 048

REACTIONS (51)
  - Death [Fatal]
  - Mood altered [Unknown]
  - Infection [Unknown]
  - Gastrointestinal disorder [Unknown]
  - Gait disturbance [Unknown]
  - Thrombocytopenia [Unknown]
  - Hypermagnesaemia [Unknown]
  - Hyponatraemia [Unknown]
  - Hypoalbuminaemia [Unknown]
  - Alanine aminotransferase increased [Unknown]
  - Back pain [Unknown]
  - Aspartate aminotransferase increased [Unknown]
  - Hypoxia [Unknown]
  - Muscular weakness [Unknown]
  - Peripheral sensory neuropathy [Unknown]
  - Blood bilirubin increased [Unknown]
  - Diarrhoea [Unknown]
  - Mucosal inflammation [Unknown]
  - Syncope [Unknown]
  - Arthropathy [Unknown]
  - Lung infection [Unknown]
  - Neutropenic infection [Unknown]
  - Decreased appetite [Unknown]
  - Confusional state [Unknown]
  - Febrile neutropenia [Unknown]
  - Dehydration [Unknown]
  - Dizziness [Unknown]
  - Hypercalcaemia [Unknown]
  - Hypotension [Unknown]
  - Insomnia [Unknown]
  - Muscular weakness [Unknown]
  - Nausea [Unknown]
  - Plasma cell myeloma [Unknown]
  - Hepatic function abnormal [Unknown]
  - Leukopenia [Unknown]
  - Anaemia [Unknown]
  - Hypophosphataemia [Unknown]
  - Hypokalaemia [Unknown]
  - Hyperglycaemia [Unknown]
  - Fatigue [Unknown]
  - Hypocalcaemia [Unknown]
  - Blood creatinine increased [Unknown]
  - Dyspnoea [Unknown]
  - Hyperkalaemia [Unknown]
  - Colitis [Unknown]
  - Hypertension [Unknown]
  - Vomiting [Unknown]
  - Diabetes mellitus [Unknown]
  - Infection [Unknown]
  - Limb discomfort [Unknown]
  - Sepsis [Unknown]
